FAERS Safety Report 19900743 (Version 1)
Quarter: 2021Q3

REPORT INFORMATION
  Report Type: Spontaneous
  Country: US (occurrence: US)
  Receive Date: 20210930
  Receipt Date: 20210930
  Transmission Date: 20211014
  Serious: Yes (Hospitalization, Disabling)
  Sender: FDA-Public Use
  Company Number: None

PATIENT
  Age: 81 Year
  Sex: Female

DRUGS (6)
  1. TEMAZEPAM. [Concomitant]
     Active Substance: TEMAZEPAM
  2. METOPROLOL TARTRATE 25MG, [Concomitant]
  3. ROSUVASTATIN 10MG [Concomitant]
     Active Substance: ROSUVASTATIN
  4. PANTOPRAZOLE 40MG [Concomitant]
     Active Substance: PANTOPRAZOLE SODIUM
  5. ESCITALOPRAM 10MG [Concomitant]
     Active Substance: ESCITALOPRAM OXALATE
  6. LYNPARZA [Suspect]
     Active Substance: OLAPARIB
     Indication: PANCREATIC CARCINOMA
     Dosage: 2 TABLETS (300MG) BID BY MOUTH
     Route: 048
     Dates: start: 20210326, end: 20210916

REACTIONS (3)
  - Hospice care [None]
  - Treatment failure [None]
  - Malignant neoplasm progression [None]

NARRATIVE: CASE EVENT DATE: 20210930
